FAERS Safety Report 22001700 (Version 1)
Quarter: 2023Q1

REPORT INFORMATION
  Report Type: Other
  Country: CA (occurrence: CA)
  Receive Date: 20230216
  Receipt Date: 20230216
  Transmission Date: 20230417
  Serious: Yes (Hospitalization, Other)
  Sender: FDA-Public Use
  Company Number: CA-HLS-202300274

PATIENT
  Age: 33 Year
  Sex: Male

DRUGS (5)
  1. CLOZAPINE [Suspect]
     Active Substance: CLOZAPINE
     Indication: Psychotic symptom
     Dosage: 450MG DAILY
     Route: 065
  2. Risperisone [Concomitant]
     Indication: Psychotic symptom
     Route: 065
  3. ZUCLOPENTHIXOL DECANOATE [Concomitant]
     Active Substance: ZUCLOPENTHIXOL DECANOATE
     Indication: Psychotic symptom
     Route: 030
  4. DIAZEPAM [Concomitant]
     Active Substance: DIAZEPAM
     Indication: Agitation
     Route: 065
  5. DIAZEPAM [Concomitant]
     Active Substance: DIAZEPAM
     Indication: Akathisia
     Route: 065

REACTIONS (7)
  - Agitation [Unknown]
  - Delusion [Not Recovered/Not Resolved]
  - Hallucination, auditory [Not Recovered/Not Resolved]
  - Off label use [Recovered/Resolved]
  - Psychotic symptom [Not Recovered/Not Resolved]
  - Akathisia [Unknown]
  - Treatment noncompliance [Unknown]
